FAERS Safety Report 15662313 (Version 2)
Quarter: 2019Q2

REPORT INFORMATION
  Report Type: Spontaneous
  Country: US (occurrence: US)
  Receive Date: 20181127
  Receipt Date: 20190621
  Transmission Date: 20190711
  Serious: Yes (Other)
  Sender: FDA-Public Use
  Company Number: US-MYLANLABS-2018M1087801

PATIENT
  Sex: Female

DRUGS (1)
  1. COLD-EEZE? COLD REMEDY [Suspect]
     Active Substance: ZINC GLUCONATE
     Indication: PRODUCT USED FOR UNKNOWN INDICATION
     Dosage: UNK
     Route: 065

REACTIONS (2)
  - Polymyalgia rheumatica [Not Recovered/Not Resolved]
  - Contraindicated product administered [Unknown]
